FAERS Safety Report 25930040 (Version 1)
Quarter: 2025Q4

REPORT INFORMATION
  Report Type: Spontaneous
  Country: US (occurrence: None)
  Receive Date: 20251015
  Receipt Date: 20251015
  Transmission Date: 20260118
  Serious: Yes (Life-Threatening, Hospitalization, Other)
  Sender: FDA-CTU
  Company Number: None

PATIENT
  Age: 39 Year
  Sex: Female
  Weight: 99 kg

DRUGS (1)
  1. ZIPRASIDONE [Suspect]
     Active Substance: ZIPRASIDONE
     Dosage: OTHER QUANTITY : 1 CAPSULE(S);?FREQUENCY : TWICE A DAY;?
     Route: 048

REACTIONS (3)
  - Arrhythmia [None]
  - Electrocardiogram QT prolonged [None]
  - Syncope [None]

NARRATIVE: CASE EVENT DATE: 20250608
